FAERS Safety Report 8359267-X (Version None)
Quarter: 2012Q2

REPORT INFORMATION
  Report Type: 
  Country: None (occurrence: None)
  Receive Date: 20120514
  Receipt Date: 20120514
  Transmission Date: 20120825
  Serious: Yes (Disabling)
  Sender: FDA-Public Use
  Company Number: None

PATIENT
  Sex: Male
  Weight: 78.9259 kg

DRUGS (1)
  1. LIPITOR [Suspect]
     Indication: LIPIDS ABNORMAL
     Dosage: 10MG QOD PO
     Route: 048
     Dates: start: 20030101, end: 20120511

REACTIONS (1)
  - DEMENTIA [None]
